FAERS Safety Report 4647989-3 (Version None)
Quarter: 2005Q2

REPORT INFORMATION
  Report Type: 
  Country: None (occurrence: None)
  Receive Date: 20050331
  Receipt Date: 20050223
  Transmission Date: 20051028
  Serious: No
  Sender: FDA-Public Use
  Company Number: 05P-163-0287376

PATIENT
  Age: 71 Year
  Sex: Female
  Weight: 70.3075 kg

DRUGS (22)
  1. HUMIRA [Suspect]
     Indication: RHEUMATOID ARTHRITIS
     Dosage: 40 MG, 1 IN 2 WK, SUBCUTANEOUS
     Route: 058
     Dates: start: 20040201
  2. PREDNISONE [Concomitant]
  3. CORTISONE [Concomitant]
  4. DYAZIDE [Concomitant]
  5. CHLORCON [Concomitant]
  6. AXOTAL [Concomitant]
  7. GABAPENTIN [Concomitant]
  8. METOPROLOL SUCCINATE [Concomitant]
  9. SINGULAIR [Concomitant]
  10. FLUOXETINE HCL [Concomitant]
  11. LANSOPRAZOLE [Concomitant]
  12. FLUTICASONE PROPIONATE [Concomitant]
  13. MUCONEX [Concomitant]
  14. OXYCOCET [Concomitant]
  15. OXYCODONE HCL [Concomitant]
  16. ALPHAGAN P [Concomitant]
  17. FEXOFENADINE HYDROCHLORIDE [Concomitant]
  18. LORAZEPAM [Concomitant]
  19. CALCITONIN-SALMON [Concomitant]
  20. QUINAPRIL HCL [Concomitant]
  21. GLIPIZIDE [Concomitant]
  22. ATORVASTATIN CALCIUM [Concomitant]

REACTIONS (4)
  - ARTHRALGIA [None]
  - ASTHENIA [None]
  - BLOOD CHOLESTEROL INCREASED [None]
  - CONDITION AGGRAVATED [None]
